FAERS Safety Report 5420464-4 (Version None)
Quarter: 2007Q3

REPORT INFORMATION
  Report Type: 
  Country: None (occurrence: None)
  Receive Date: 20070817
  Receipt Date: 20070817
  Transmission Date: 20080115
  Serious: No
  Sender: FDA-Public Use
  Company Number: None

PATIENT
  Sex: Female
  Weight: 64.8644 kg

DRUGS (2)
  1. CLONAZEPAM [Suspect]
     Indication: ANXIETY
     Dosage: MONTH
  2. CLONAZEPAM [Suspect]
     Indication: DEPRESSION
     Dosage: MONTH

REACTIONS (3)
  - AGITATION [None]
  - CRYING [None]
  - SUICIDE ATTEMPT [None]
